FAERS Safety Report 15705817 (Version 3)
Quarter: 2019Q2

REPORT INFORMATION
  Report Type: Report from Study
  Country: CA (occurrence: CA)
  Receive Date: 20181210
  Receipt Date: 20190405
  Transmission Date: 20190711
  Serious: Yes (Other)
  Sender: FDA-Public Use
  Company Number: CA-JNJFOC-20181206511

PATIENT
  Sex: Female
  Weight: 78.02 kg

DRUGS (1)
  1. REMICADE [Suspect]
     Active Substance: INFLIXIMAB
     Indication: CROHN^S DISEASE
     Dosage: STRENGTH = 100 MG
     Route: 042
     Dates: start: 20160422, end: 20181221

REACTIONS (3)
  - Neoplasm malignant [Unknown]
  - Malignant melanoma [Unknown]
  - Surgery [Unknown]
